FAERS Safety Report 21015405 (Version 1)
Quarter: 2022Q2

REPORT INFORMATION
  Report Type: Spontaneous
  Country: US (occurrence: US)
  Receive Date: 20220628
  Receipt Date: 20220628
  Transmission Date: 20220721
  Serious: No
  Sender: FDA-Public Use
  Company Number: US-BAUSCH-BL-2022-015454

PATIENT
  Age: 73 Year
  Sex: Male

DRUGS (1)
  1. JUBLIA [Suspect]
     Active Substance: EFINACONAZOLE
     Indication: Product used for unknown indication
     Route: 061
     Dates: end: 202206

REACTIONS (1)
  - Product delivery mechanism issue [Unknown]

NARRATIVE: CASE EVENT DATE: 20220601
